FAERS Safety Report 10699178 (Version 1)
Quarter: 2015Q1

REPORT INFORMATION
  Report Type: Spontaneous
  Country: US (occurrence: US)
  Receive Date: 20150108
  Receipt Date: 20150108
  Transmission Date: 20150721
  Serious: Yes (Death, Hospitalization, Other)
  Sender: FDA-Public Use
  Company Number: US-BAUSCH-BL-2015-000022

PATIENT
  Age: 43 Year
  Sex: Female

DRUGS (2)
  1. XENAZINE [Suspect]
     Active Substance: TETRABENAZINE
     Dosage: 12.5MG AT 8AM AND AT NOON
     Route: 048
     Dates: start: 20100121, end: 20141108
  2. XENAZINE [Suspect]
     Active Substance: TETRABENAZINE
     Indication: DEMENTIA
     Dosage: 37.5MG AT 8 AM AND NOON, 25 MG AT 8PM
     Route: 048
     Dates: start: 20110602, end: 20141108

REACTIONS (5)
  - Death [Fatal]
  - Cerebrovascular accident [Unknown]
  - Off label use [Recovered/Resolved]
  - Hospice care [Unknown]
  - Brain neoplasm [Unknown]

NARRATIVE: CASE EVENT DATE: 20110602
